FAERS Safety Report 10882108 (Version 1)
Quarter: 2015Q1

REPORT INFORMATION
  Report Type: Spontaneous
  Country: CA (occurrence: CA)
  Receive Date: 20150303
  Receipt Date: 20150303
  Transmission Date: 20150721
  Serious: Yes (Other)
  Sender: FDA-Public Use
  Company Number: CA-TEVA-545005ACC

PATIENT
  Age: 23 Year
  Sex: Female

DRUGS (2)
  1. METHYLPHENIDATE [Suspect]
     Active Substance: METHYLPHENIDATE
     Indication: TOURETTE^S DISORDER
     Dosage: 72 MILLIGRAM DAILY;
     Route: 065
  2. METHYLPHENIDATE [Suspect]
     Active Substance: METHYLPHENIDATE
     Indication: ATTENTION DEFICIT/HYPERACTIVITY DISORDER

REACTIONS (4)
  - Affect lability [Unknown]
  - Dizziness [Unknown]
  - Disturbance in attention [Unknown]
  - Product substitution issue [Unknown]
